FAERS Safety Report 8827411 (Version 1)
Quarter: 2012Q4

REPORT INFORMATION
  Report Type: 
  Country: US (occurrence: US)
  Receive Date: 20121005
  Receipt Date: 20121005
  Transmission Date: 20130627
  Serious: Yes (Hospitalization)
  Sender: FDA-Public Use
  Company Number: US-BRISTOL-MYERS SQUIBB COMPANY-16510554

PATIENT
  Age: 70 Year
  Sex: Female

DRUGS (10)
  1. AVAPRO [Suspect]
     Indication: HYPERTENSION
     Route: 048
     Dates: start: 20090130
  2. KEPPRA [Concomitant]
     Dosage: 1df=1 + 1/2 tabs
250mg tabs
     Route: 048
  3. SIMVASTATIN [Concomitant]
     Indication: BLOOD CHOLESTEROL
     Dosage: 1df=1 tablet
20mg tabs
     Route: 048
  4. ADVAIR DISKUS [Concomitant]
     Dosage: 1df=1 inhalation
Strength:250-50mcg/dose
     Route: 055
  5. BETAMETHASONE DIPROPIONATE [Concomitant]
     Dosage: 0.05% topical cream
     Route: 061
  6. CLINDAMYCIN PHOSPHATE [Concomitant]
     Dosage: 1% topical solution
     Route: 061
  7. CALCIUM + VITAMIN D [Concomitant]
  8. MULTIVITAMIN [Concomitant]
     Dosage: 1df=1 capsule
     Route: 048
  9. FLUTICASONE [Concomitant]
     Dosage: 1df=1 spray to each nostril/d
Strength:50mcg
     Route: 045
  10. VENTOLIN INHALER [Concomitant]
     Dosage: 1df=1 to 2 inhaltions every 4 to 6hrs
Ventolin HFA 90mcg/actuation aerosol inhaler
     Route: 055

REACTIONS (1)
  - Non-alcoholic steatohepatitis [Unknown]
